FAERS Safety Report 5203044-5 (Version None)
Quarter: 2006Q4

REPORT INFORMATION
  Report Type: 
  Country: None (occurrence: None)
  Receive Date: 20061016
  Receipt Date: 20060727
  Transmission Date: 20070319
  Serious: Yes (Other)
  Sender: FDA-Public Use
  Company Number: 2006093534

PATIENT
  Age: 55 Year
  Sex: Female
  Weight: 74.8435 kg

DRUGS (7)
  1. NEURONTIN [Suspect]
     Indication: TRIGEMINAL NEURALGIA
     Dosage: 3200 MG (800 MG, 4 IN 1 D), ORAL
     Route: 048
     Dates: start: 19940101, end: 20060601
  2. NEURONTIN [Suspect]
     Indication: TRIGEMINAL NEURALGIA
     Dosage: 3200 MG (800 MG, 4 IN 1 D), ORAL
     Route: 048
     Dates: start: 20060601
  3. WELLBUTRIN SR [Concomitant]
  4. ATACAND [Concomitant]
  5. KLONOPIN [Concomitant]
  6. LESCOL [Concomitant]
  7. NORTRIPTYLINE HCL [Concomitant]

REACTIONS (2)
  - BURNING SENSATION [None]
  - DIABETES MELLITUS [None]
